FAERS Safety Report 12380551 (Version 3)
Quarter: 2018Q2

REPORT INFORMATION
  Report Type: Spontaneous
  Country: DE (occurrence: DE)
  Receive Date: 20160518
  Receipt Date: 20180412
  Transmission Date: 20180711
  Serious: Yes (Other)
  Sender: FDA-Public Use
  Company Number: PHHY2016DE066691

PATIENT
  Sex: Female

DRUGS (1)
  1. SANDOSTATIN LAR DEPOT [Suspect]
     Active Substance: OCTREOTIDE ACETATE
     Indication: NEUROENDOCRINE TUMOUR
     Dosage: 30 MG, BIW
     Route: 065
     Dates: start: 201311

REACTIONS (9)
  - Influenza like illness [Unknown]
  - Fear [Unknown]
  - Fall [Not Recovered/Not Resolved]
  - Hypoglycaemia [Unknown]
  - Loss of consciousness [Not Recovered/Not Resolved]
  - Carcinoid crisis [Unknown]
  - Flushing [Not Recovered/Not Resolved]
  - General physical health deterioration [Unknown]
  - Inappropriate schedule of drug administration [Unknown]

NARRATIVE: CASE EVENT DATE: 20180318
